FAERS Safety Report 4862603-X (Version None)
Quarter: 2005Q4

REPORT INFORMATION
  Report Type: 
  Country: None (occurrence: None)
  Receive Date: 20051221
  Receipt Date: 20051026
  Transmission Date: 20060501
  Serious: Yes (Disabling)
  Sender: FDA-Public Use
  Company Number: US-ROCHE-422880

PATIENT
  Age: 50 Year
  Sex: Male
  Weight: 68 kg

DRUGS (3)
  1. PEGASYS [Suspect]
     Route: 058
     Dates: start: 20050319, end: 20051215
  2. COPEGUS [Suspect]
     Dosage: 600 MG AM AND 400 MG PM. HAS RECEIVED OCCASIONALLY DOSE REDUCTIONS IN RELATION WITH HAEMOGLOBIN.
     Route: 048
     Dates: start: 20050319, end: 20051215
  3. PROCRIT [Concomitant]
     Dosage: STRENGTH: 20 000 UNITS. ON 17 JUNE 2005, THE FREQUENCY WAS INCREASED FROM TWICE WEEKLY TO THREE TIM+
     Route: 058
     Dates: end: 20051014

REACTIONS (2)
  - ANAEMIA [None]
  - LUNG DISORDER [None]
